FAERS Safety Report 4296766-4 (Version None)
Quarter: 2004Q1

REPORT INFORMATION
  Report Type: 
  Country: None (occurrence: None)
  Receive Date: 20040126
  Receipt Date: 20031017
  Transmission Date: 20041129
  Serious: No
  Sender: FDA-Public Use
  Company Number: USA030742875

PATIENT
  Age: 19 Year
  Sex: Female
  Weight: 82 kg

DRUGS (3)
  1. STRATTERA [Suspect]
     Indication: ATTENTION DEFICIT/HYPERACTIVITY DISORDER
     Dosage: 80 MG/DAY
     Dates: start: 20030726
  2. STRATTERA [Suspect]
     Indication: BIPOLAR DISORDER
     Dosage: 80 MG/DAY
     Dates: start: 20030726
  3. LEXAPRO [Concomitant]

REACTIONS (8)
  - ASTHENIA [None]
  - BLISTER [None]
  - FATIGUE [None]
  - HEADACHE [None]
  - HYPERSOMNIA [None]
  - HYPOKINESIA [None]
  - INSOMNIA [None]
  - MANIA [None]
